FAERS Safety Report 8255444-7 (Version None)
Quarter: 2012Q2

REPORT INFORMATION
  Report Type: 
  Country: None (occurrence: None)
  Receive Date: 20120403
  Receipt Date: 20120322
  Transmission Date: 20120825
  Serious: Yes (Other)
  Sender: FDA-Public Use
  Company Number: US-SANOFI-AVENTIS-2012SA020343

PATIENT
  Age: 49 Year
  Sex: Female

DRUGS (9)
  1. LASIX [Concomitant]
  2. SULFASALAZINE [Concomitant]
  3. NEXIUM [Concomitant]
  4. POTASSIUM CHLORIDE [Concomitant]
  5. LISINOPRIL [Concomitant]
  6. PLAQUENIL [Suspect]
     Dates: end: 20110501
  7. NEURONTIN [Concomitant]
  8. CELEBREX [Concomitant]
  9. AMBIEN [Concomitant]

REACTIONS (4)
  - SYSTEMIC LUPUS ERYTHEMATOSUS [None]
  - VISUAL IMPAIRMENT [None]
  - PIGMENTATION DISORDER [None]
  - SKIN DISORDER [None]
